FAERS Safety Report 20688906 (Version 1)
Quarter: 2022Q2

REPORT INFORMATION
  Report Type: Spontaneous
  Country: ES (occurrence: ES)
  Receive Date: 20220408
  Receipt Date: 20220408
  Transmission Date: 20220720
  Serious: Yes (Death, Other)
  Sender: FDA-Public Use
  Company Number: None

PATIENT
  Age: 64 Year
  Sex: Male

DRUGS (2)
  1. NIVOLUMAB [Suspect]
     Active Substance: NIVOLUMAB
     Indication: Metastatic ocular melanoma
     Route: 042
     Dates: start: 20210815, end: 20210915
  2. IPILIMUMAB [Suspect]
     Active Substance: IPILIMUMAB
     Indication: Metastatic ocular melanoma
     Route: 042
     Dates: start: 20210815, end: 20210915

REACTIONS (2)
  - Tubulointerstitial nephritis [Fatal]
  - Glomerulonephritis rapidly progressive [Fatal]

NARRATIVE: CASE EVENT DATE: 20211011
